FAERS Safety Report 16848753 (Version 1)
Quarter: 2019Q3

REPORT INFORMATION
  Report Type: Spontaneous
  Country: US (occurrence: US)
  Receive Date: 20190925
  Receipt Date: 20190925
  Transmission Date: 20191005
  Serious: No
  Sender: FDA-Public Use
  Company Number: US-AUROBINDO-AUR-APL-2019-052899

PATIENT
  Age: 80 Year
  Sex: Female
  Weight: 57 kg

DRUGS (14)
  1. AMLODIPINE BESILATE;BENAZEPRIL [Suspect]
     Active Substance: AMLODIPINE BESYLATE\BENAZEPRIL HYDROCHLORIDE
  2. TRIMULEX [Suspect]
     Active Substance: CARBOCYSTEINE
  3. VITAMIN B1 [Suspect]
     Active Substance: THIAMINE HYDROCHLORIDE
  4. ASPIRIN. [Suspect]
     Active Substance: ASPIRIN
  5. IRON [Suspect]
     Active Substance: IRON
  6. PROPRANOLOL [Suspect]
     Active Substance: PROPRANOLOL HYDROCHLORIDE
  7. VITAMIN C [Suspect]
     Active Substance: ASCORBIC ACID
  8. ALENDRONATE SODIUM. [Suspect]
     Active Substance: ALENDRONATE SODIUM
     Indication: BONE DENSITY DECREASED
     Dosage: 1 DOSAGE FORM, EVERY WEEK
     Route: 065
     Dates: start: 20190630
  9. ATORVASTATIN [Suspect]
     Active Substance: ATORVASTATIN
  10. CALCIUM [Suspect]
     Active Substance: CALCIUM
  11. LEVOCETIRIZINE [Suspect]
     Active Substance: LEVOCETIRIZINE
  12. LORAZEPAM. [Suspect]
     Active Substance: LORAZEPAM
  13. VITAMIN D3 [Suspect]
     Active Substance: CHOLECALCIFEROL
  14. FISH OIL [Suspect]
     Active Substance: FISH OIL

REACTIONS (2)
  - Pain [Not Recovered/Not Resolved]
  - Back pain [Not Recovered/Not Resolved]

NARRATIVE: CASE EVENT DATE: 201901
